FAERS Safety Report 7210309-4 (Version None)
Quarter: 2011Q1

REPORT INFORMATION
  Report Type: 
  Country: None (occurrence: None)
  Receive Date: 20110103
  Receipt Date: 20110103
  Transmission Date: 20110831
  Serious: Yes (Hospitalization)
  Sender: FDA-Public Use
  Company Number: None

PATIENT
  Age: 81 Year
  Sex: Male
  Weight: 89 kg

DRUGS (1)
  1. GEMCITABINE [Suspect]
     Dates: start: 20100909

REACTIONS (3)
  - CONFUSIONAL STATE [None]
  - PYREXIA [None]
  - MENTAL STATUS CHANGES [None]
